FAERS Safety Report 16057271 (Version 1)
Quarter: 2019Q1

REPORT INFORMATION
  Report Type: Spontaneous
  Country: US (occurrence: US)
  Receive Date: 20190311
  Receipt Date: 20190311
  Transmission Date: 20190418
  Serious: No
  Sender: FDA-Public Use
  Company Number: US-PFIZER INC-2019095847

PATIENT
  Age: 64 Year
  Sex: Female
  Weight: 45.36 kg

DRUGS (8)
  1. TRAZODONE [Concomitant]
     Active Substance: TRAZODONE HYDROCHLORIDE
     Indication: ANTIDEPRESSANT THERAPY
     Dosage: 100 MG, 1X/DAY (AT NIGHT)
     Route: 048
  2. LYRICA [Suspect]
     Active Substance: PREGABALIN
     Indication: FIBROMYALGIA
     Dosage: 150 MG, 3X/DAY
     Route: 048
  3. TIZANIDINE. [Concomitant]
     Active Substance: TIZANIDINE
     Indication: RELAXATION THERAPY
  4. TRAZODONE [Concomitant]
     Active Substance: TRAZODONE HYDROCHLORIDE
     Indication: SLEEP DISORDER
  5. CYCLOBENZAPRINE. [Concomitant]
     Active Substance: CYCLOBENZAPRINE
     Indication: MUSCLE SPASMS
     Dosage: UNK, AS NEEDED
  6. ALPRAZOLAM. [Concomitant]
     Active Substance: ALPRAZOLAM
     Indication: ANXIETY
     Dosage: 0.5 MG, AS NEEDED (0.5 MG AS NEED 1 TABLET UP TO THREE TIMES A DAY)
  7. TIZANIDINE. [Concomitant]
     Active Substance: TIZANIDINE
     Indication: SCIATIC NERVE NEUROPATHY
     Dosage: 4 MG, AS NEEDED (ONE TAB BY MOUTH AS NEED EVERY 6 HOURS)
     Route: 048
  8. EFFEXOR [Concomitant]
     Active Substance: VENLAFAXINE HYDROCHLORIDE
     Indication: ANTIDEPRESSANT THERAPY
     Dosage: DOSE IS UNKNOWN

REACTIONS (3)
  - Pain [Unknown]
  - Product use issue [Unknown]
  - Drug effect incomplete [Not Recovered/Not Resolved]
